FAERS Safety Report 20169731 (Version 1)
Quarter: 2021Q4

REPORT INFORMATION
  Report Type: Spontaneous
  Country: CN (occurrence: None)
  Receive Date: 20211210
  Receipt Date: 20211210
  Transmission Date: 20220303
  Serious: Yes (Hospitalization)
  Sender: FDA-Public Use
  Company Number: CN-ROCHE-2970038

PATIENT
  Age: 52 Year
  Sex: Female
  Weight: 62 kg

DRUGS (5)
  1. PERTUZUMAB [Suspect]
     Active Substance: PERTUZUMAB
     Indication: Invasive ductal breast carcinoma
     Route: 041
     Dates: start: 20210113
  2. TRASTUZUMAB [Suspect]
     Active Substance: TRASTUZUMAB
     Indication: Invasive ductal breast carcinoma
     Route: 041
     Dates: start: 20210113
  3. PACLITAXEL [Suspect]
     Active Substance: PACLITAXEL
     Indication: Invasive ductal breast carcinoma
     Route: 041
     Dates: start: 20210112
  4. COMPOUND DIISOPROPYLAMINE DICHLOROACETATE INJECTION [Concomitant]
     Route: 041
     Dates: start: 20210111, end: 20210113
  5. OMEPRAZOLE SODIUM [Concomitant]
     Active Substance: OMEPRAZOLE SODIUM
     Route: 041
     Dates: start: 20210111, end: 20210113

REACTIONS (1)
  - Myelosuppression [Unknown]

NARRATIVE: CASE EVENT DATE: 20210202
